FAERS Safety Report 24562918 (Version 1)
Quarter: 2024Q4

REPORT INFORMATION
  Report Type: Report from Study
  Country: CA (occurrence: CA)
  Receive Date: 20241030
  Receipt Date: 20241030
  Transmission Date: 20250114
  Serious: Yes (Other)
  Sender: ABBVIE
  Company Number: CA-ABBVIE-5982391

PATIENT
  Sex: Female

DRUGS (1)
  1. RINVOQ [Suspect]
     Active Substance: UPADACITINIB
     Indication: Crohn^s disease
     Dosage: FORM STRENGTH: 30 MILLIGRAM?TYPICALLY TOOK RINVOQ IN THE MORNING.
     Route: 048
     Dates: start: 20231209

REACTIONS (2)
  - Ostomy bag placement [Unknown]
  - Product residue present [Unknown]
